FAERS Safety Report 6723188-6 (Version None)
Quarter: 2010Q2

REPORT INFORMATION
  Report Type: 
  Country: None (occurrence: None)
  Receive Date: 20100513
  Receipt Date: 20100505
  Transmission Date: 20101027
  Serious: Yes (Other)
  Sender: FDA-Public Use
  Company Number: FR-JNJFOC-20100304113

PATIENT
  Sex: Male
  Weight: 130 kg

DRUGS (7)
  1. KETODERM [Suspect]
     Route: 061
  2. KETODERM [Suspect]
     Indication: DRUG USE FOR UNKNOWN INDICATION
     Route: 061
  3. COKENZEN [Concomitant]
     Route: 048
  4. GLICLAZIDE [Concomitant]
     Route: 048
  5. METFORMIN HCL [Concomitant]
     Route: 048
  6. TAHOR [Concomitant]
     Route: 048
  7. FLUINDIONE [Concomitant]
     Route: 048

REACTIONS (2)
  - APPLICATION SITE REACTION [None]
  - DRUG ADMINISTRATION ERROR [None]
